FAERS Safety Report 18735088 (Version 5)
Quarter: 2024Q4

REPORT INFORMATION
  Report Type: Report from Study
  Country: US (occurrence: US)
  Receive Date: 20210113
  Receipt Date: 20241105
  Transmission Date: 20250115
  Serious: Yes (Disabling, Other)
  Sender: TAKEDA
  Company Number: US-TAKEDA-2021TUS001344

PATIENT
  Sex: Male

DRUGS (1)
  1. VEDOLIZUMAB [Suspect]
     Active Substance: VEDOLIZUMAB
     Indication: Crohn^s disease
     Dosage: 300 MILLIGRAM
     Route: 042

REACTIONS (5)
  - Disability [Unknown]
  - Myocardial infarction [Unknown]
  - Fibrosis [Unknown]
  - Hepatic steatosis [Unknown]
  - Memory impairment [Unknown]
